FAERS Safety Report 16711993 (Version 1)
Quarter: 2019Q3

REPORT INFORMATION
  Report Type: Report from Study
  Country: US (occurrence: US)
  Receive Date: 20190816
  Receipt Date: 20190816
  Transmission Date: 20191004
  Serious: Yes (Life-Threatening, Hospitalization, Other)
  Sender: FDA-Public Use
  Company Number: US-GILEAD-2018-0352591

PATIENT
  Age: 66 Year
  Sex: Female
  Weight: 69.5 kg

DRUGS (42)
  1. FUROSEMIDE. [Concomitant]
     Active Substance: FUROSEMIDE
     Dosage: 40,MG,TWICE DAILY
     Route: 042
     Dates: start: 20180731, end: 20180731
  2. GABAPENTIN. [Concomitant]
     Active Substance: GABAPENTIN
     Dosage: 600,MG,THREE TIMES DAILY
     Route: 048
     Dates: start: 20180809, end: 20180831
  3. ACETAMINOPHEN. [Concomitant]
     Active Substance: ACETAMINOPHEN
     Dosage: 650,MG,AS NECESSARY
     Route: 048
     Dates: start: 20180724, end: 20180824
  4. RANITIDINE. [Concomitant]
     Active Substance: RANITIDINE
     Dosage: 150,MG,TWICE DAILY
     Route: 048
     Dates: start: 20180723, end: 20180726
  5. POTASSIUM CHLORIDE. [Concomitant]
     Active Substance: POTASSIUM CHLORIDE
     Dosage: 60,OTHER,ONCE
     Route: 048
     Dates: start: 20180729, end: 20180729
  6. METOPROLOL TARTRATE. [Concomitant]
     Active Substance: METOPROLOL TARTRATE
     Dosage: 12.5,MG,ONCE
     Route: 048
     Dates: start: 20180723, end: 20180723
  7. AXICABTAGENE CILOLEUCEL [Suspect]
     Active Substance: AXICABTAGENE CILOLEUCEL
     Indication: DIFFUSE LARGE B-CELL LYMPHOMA RECURRENT
     Dosage: 68
     Route: 042
     Dates: start: 20180723, end: 20180723
  8. FUROSEMIDE. [Concomitant]
     Active Substance: FUROSEMIDE
     Dosage: 20,MG,ONCE
     Route: 042
     Dates: start: 20180719, end: 20180719
  9. FUROSEMIDE. [Concomitant]
     Active Substance: FUROSEMIDE
     Dosage: 20,MG,DAILY
     Route: 048
     Dates: start: 20180825
  10. LEVETIRACETAM. [Concomitant]
     Active Substance: LEVETIRACETAM
     Dosage: 500,MG,TWICE DAILY
     Route: 048
     Dates: start: 20180723, end: 20180727
  11. LEVETIRACETAM. [Concomitant]
     Active Substance: LEVETIRACETAM
     Dosage: 1000,MG,TWICE DAILY
     Route: 048
     Dates: start: 20180801, end: 20180805
  12. GABAPENTIN. [Concomitant]
     Active Substance: GABAPENTIN
     Dosage: 200,MG,THREE TIMES DAILY
     Route: 048
     Dates: start: 20180728, end: 20180808
  13. CHLORHEXIDINE GLUCONATE. [Concomitant]
     Active Substance: CHLORHEXIDINE GLUCONATE
     Dosage: 15,ML,THREE TIMES DAILY
     Route: 048
     Dates: start: 20180723, end: 20180801
  14. LEVETIRACETAM. [Concomitant]
     Active Substance: LEVETIRACETAM
     Dosage: 1000,MG,TWICE DAILY
     Route: 042
     Dates: start: 20180727, end: 20180801
  15. DIPHENHYDRAMINE. [Concomitant]
     Active Substance: DIPHENHYDRAMINE
     Dosage: 12.5,MG,ONCE
     Route: 048
     Dates: start: 20180723, end: 20180723
  16. METOPROLOL TARTRATE. [Concomitant]
     Active Substance: METOPROLOL TARTRATE
     Dosage: 25,MG,TWICE DAILY
     Route: 048
     Dates: start: 20180729, end: 20180729
  17. METOPROLOL SUCCINATE. [Concomitant]
     Active Substance: METOPROLOL SUCCINATE
     Dosage: 25,MG,ONCE
     Route: 048
     Dates: start: 20180831
  18. ONDANSETRON [Concomitant]
     Active Substance: ONDANSETRON
     Dosage: 4,MG,AS NECESSARY
     Route: 048
     Dates: start: 20180830, end: 20180830
  19. ALLOPURINOL. [Concomitant]
     Active Substance: ALLOPURINOL
     Dosage: 300,MG,DAILY
     Route: 048
     Dates: start: 20180723, end: 20180803
  20. METOPROLOL TARTRATE. [Concomitant]
     Active Substance: METOPROLOL TARTRATE
     Dosage: 12.5,MG,TWICE DAILY
     Route: 048
     Dates: start: 20180801, end: 20180806
  21. ONDANSETRON [Concomitant]
     Active Substance: ONDANSETRON
     Dosage: 4,MG,ONCE
     Route: 042
     Dates: start: 20180806, end: 20180806
  22. BAZA ANTIFUNGAL [Concomitant]
     Active Substance: MICONAZOLE NITRATE
     Dosage: 1,OTHER,THREE TIMES DAILY
     Route: 061
     Dates: start: 20180810, end: 20180824
  23. GABAPENTIN. [Concomitant]
     Active Substance: GABAPENTIN
     Dosage: 300,MG,THREE TIMES DAILY
     Route: 048
     Dates: start: 20170601, end: 20180727
  24. RANITIDINE. [Concomitant]
     Active Substance: RANITIDINE
     Dosage: 150,MG,TWICE DAILY
     Route: 050
     Dates: start: 20180727, end: 20180731
  25. POTASSIUM CHLORIDE. [Concomitant]
     Active Substance: POTASSIUM CHLORIDE
     Dosage: 40,OTHER,ONCE
     Route: 048
     Dates: start: 20180802, end: 20180802
  26. METOPROLOL TARTRATE. [Concomitant]
     Active Substance: METOPROLOL TARTRATE
     Dosage: 12.5,MG,DAILY
     Route: 048
     Dates: start: 20180727, end: 20180728
  27. METOPROLOL TARTRATE. [Concomitant]
     Active Substance: METOPROLOL TARTRATE
     Dosage: 25,MG,TWICE DAILY
     Route: 048
     Dates: start: 20180807, end: 20180830
  28. CYCLOPHOSPHAMIDE. [Suspect]
     Active Substance: CYCLOPHOSPHAMIDE
     Indication: BONE MARROW CONDITIONING REGIMEN
     Dosage: 500 MG/M2, QD
     Route: 042
     Dates: start: 20180718, end: 20180720
  29. METOPROLOL SUCCINATE. [Concomitant]
     Active Substance: METOPROLOL SUCCINATE
     Dosage: 25,MG,DAILY
     Route: 048
     Dates: start: 20160101, end: 20180722
  30. FUROSEMIDE. [Concomitant]
     Active Substance: FUROSEMIDE
     Dosage: 40,MG,ONCE
     Route: 042
     Dates: start: 20180801, end: 20180802
  31. PENTAMIDINE [Concomitant]
     Active Substance: PENTAMIDINE
     Dosage: 300,MG,ONCE
     Route: 055
     Dates: start: 20180821, end: 20180821
  32. ACETAMINOPHEN. [Concomitant]
     Active Substance: ACETAMINOPHEN
     Dosage: 650,MG,ONCE
     Route: 048
     Dates: start: 20180723, end: 20180723
  33. FLUDARABINE [Suspect]
     Active Substance: FLUDARABINE PHOSPHATE
     Indication: BONE MARROW CONDITIONING REGIMEN
     Dosage: 30 MG/M2, QD
     Route: 042
     Dates: start: 20180718, end: 20180720
  34. ONDANSETRON [Concomitant]
     Active Substance: ONDANSETRON
     Dosage: 16,MG,DAILY
     Route: 048
     Dates: start: 20180718, end: 20190120
  35. LEVETIRACETAM. [Concomitant]
     Active Substance: LEVETIRACETAM
     Dosage: 500,MG,TWICE DAILY
     Route: 048
     Dates: start: 20180805
  36. GABAPENTIN. [Concomitant]
     Active Substance: GABAPENTIN
     Dosage: 600,MG,DAILY
     Route: 048
     Dates: start: 20180723, end: 20180724
  37. GABAPENTIN. [Concomitant]
     Active Substance: GABAPENTIN
     Dosage: 300,MG,OTHER
     Route: 048
     Dates: start: 20180808, end: 20180808
  38. POTASSIUM CHLORIDE. [Concomitant]
     Active Substance: POTASSIUM CHLORIDE
     Dosage: 20,OTHER,FOUR TIMES DAILY
     Route: 048
     Dates: start: 20180723, end: 20180727
  39. OXYCODONE HYDROCHLORIDE. [Concomitant]
     Active Substance: OXYCODONE HYDROCHLORIDE
     Dosage: 20,MG,THREE TIMES DAILY
     Route: 048
     Dates: start: 20170601, end: 20180722
  40. ONDANSETRON [Concomitant]
     Active Substance: ONDANSETRON
     Dosage: 12.5,MG,ONCE
     Route: 048
     Dates: start: 20180817, end: 20180817
  41. PENTAMIDINE [Concomitant]
     Active Substance: PENTAMIDINE
     Dosage: 300,MG,ONCE
     Route: 055
     Dates: start: 20180807, end: 20180807
  42. GABAPENTIN. [Concomitant]
     Active Substance: GABAPENTIN
     Dosage: 300,MG,THREE TIMES DAILY
     Route: 048
     Dates: start: 20180905

REACTIONS (9)
  - Cytokine release syndrome [Recovered/Resolved]
  - Respiratory failure [Recovered/Resolved]
  - Blood fibrinogen decreased [Recovered/Resolved]
  - Hypoxia [Recovered/Resolved]
  - Tachypnoea [Recovered/Resolved]
  - Cardiac failure [Recovered/Resolved]
  - Encephalopathy [Recovered/Resolved with Sequelae]
  - Somnolence [Recovered/Resolved]
  - Pyrexia [Recovered/Resolved]

NARRATIVE: CASE EVENT DATE: 20180724
